FAERS Safety Report 6154361-6 (Version None)
Quarter: 2009Q2

REPORT INFORMATION
  Report Type: 
  Country: None (occurrence: None)
  Receive Date: 20090414
  Receipt Date: 20090408
  Transmission Date: 20091009
  Serious: Yes (Life-Threatening, Hospitalization, Other)
  Sender: FDA-Public Use
  Company Number: PHBS2007JP06889

PATIENT
  Age: 75 Year
  Sex: Male

DRUGS (7)
  1. NEORAL [Interacting]
     Indication: NEPHROTIC SYNDROME
     Dosage: 200 MG/DAY
     Route: 048
  2. ITRACONAZOLE [Interacting]
     Indication: SCEDOSPORIUM INFECTION
     Dosage: 200 MG/DAY
     Route: 048
  3. ITRACONAZOLE [Interacting]
     Dosage: 100 MG/DAY
  4. VORICONAZOLE [Suspect]
     Indication: SCEDOSPORIUM INFECTION
     Dosage: 400 MG/D
     Route: 065
     Dates: start: 20060701
  5. STEROIDS NOS [Suspect]
     Indication: NEPHROTIC SYNDROME
     Dosage: 10 TO 15 MG/DAY
     Route: 048
  6. KETOCONAZOLE [Concomitant]
     Indication: SCEDOSPORIUM INFECTION
     Dosage: UNK, UNK
     Route: 061
  7. LAMISIL [Concomitant]
     Indication: SCEDOSPORIUM INFECTION
     Route: 048

REACTIONS (15)
  - ABSCESS [None]
  - ERYTHEMA [None]
  - HEPATITIS [None]
  - OEDEMA [None]
  - PAIN [None]
  - PANCYTOPENIA [None]
  - PURULENT DISCHARGE [None]
  - RASH [None]
  - RASH PUSTULAR [None]
  - RENAL IMPAIRMENT [None]
  - SCEDOSPORIUM INFECTION [None]
  - SKIN EROSION [None]
  - SKIN LESION [None]
  - SKIN ULCER [None]
  - SWELLING [None]
